FAERS Safety Report 8056220-0 (Version None)
Quarter: 2012Q1

REPORT INFORMATION
  Report Type: 
  Country: None (occurrence: None)
  Receive Date: 20120119
  Receipt Date: 20120116
  Transmission Date: 20120608
  Serious: Yes (Death, Other)
  Sender: FDA-Public Use
  Company Number: PHHY2011GB108453

PATIENT
  Age: 62 Year
  Sex: Male

DRUGS (11)
  1. METHOTREXATE [Suspect]
     Dosage: UNK
     Dates: start: 20050901, end: 20070601
  2. HYDROXYCHLOROQUINE SULFATE [Concomitant]
     Dosage: UNK UKN, UNK
  3. METHOTREXATE [Suspect]
     Indication: RHEUMATOID ARTHRITIS
     Dosage: UNK
     Dates: start: 19991201, end: 20030601
  4. HYDROCORTISONE [Concomitant]
     Indication: ADRENAL INSUFFICIENCY
     Dosage: UNK UKN, UNK
  5. CALCIUM CARBONATE [Concomitant]
     Dosage: UNK
  6. SPIRONOLACTONE [Concomitant]
     Dosage: UNK UKN, UNK
  7. FERROUS FUMARATE [Concomitant]
     Dosage: UNK UKN, UNK
  8. OMEPRAZOLE [Concomitant]
     Dosage: UNK UKN, UNK
  9. RISEDRONATE SODIUM [Concomitant]
     Dosage: UNK UKN, UNK
  10. LACTULOSE [Concomitant]
     Dosage: UNK UKN, UNK
  11. PROPRANOLOL [Concomitant]
     Dosage: UNK UKN, UNK

REACTIONS (3)
  - SEPSIS [None]
  - NODULAR REGENERATIVE HYPERPLASIA [None]
  - LIVER FUNCTION TEST ABNORMAL [None]
